FAERS Safety Report 20725490 (Version 1)
Quarter: 2022Q2

REPORT INFORMATION
  Report Type: Spontaneous
  Country: GB (occurrence: GB)
  Receive Date: 20220419
  Receipt Date: 20220419
  Transmission Date: 20220721
  Serious: Yes (Other)
  Sender: FDA-Public Use
  Company Number: None

PATIENT
  Age: 86 Year
  Sex: Male

DRUGS (1)
  1. TAMSULOSIN [Suspect]
     Active Substance: TAMSULOSIN
     Dosage: UNIT DOSE ; 400 MG, DURATION :5 DAYS
     Route: 065
     Dates: start: 20220307, end: 20220312

REACTIONS (6)
  - Dysstasia [Unknown]
  - Transient ischaemic attack [Unknown]
  - Confusional state [Recovering/Resolving]
  - Dysarthria [Recovering/Resolving]
  - Hyperhidrosis [Recovering/Resolving]
  - Medication error [Unknown]

NARRATIVE: CASE EVENT DATE: 20220312
